FAERS Safety Report 9333667 (Version 1)
Quarter: 2013Q2

REPORT INFORMATION
  Report Type: Spontaneous
  Country: AU (occurrence: AU)
  Receive Date: 20130606
  Receipt Date: 20130606
  Transmission Date: 20140414
  Serious: Yes (Other)
  Sender: FDA-Public Use
  Company Number: AU-ASTRAZENECA-2013SE37641

PATIENT
  Age: 23463 Day
  Sex: Male

DRUGS (6)
  1. CRESTOR [Suspect]
     Route: 048
  2. ASPIRIN [Concomitant]
  3. METOPROLOL TARTRATE [Concomitant]
  4. PARIET [Concomitant]
  5. PLAVIX [Concomitant]
  6. RAMIPRIL [Concomitant]

REACTIONS (4)
  - Suicidal ideation [Recovered/Resolved]
  - Anger [Recovered/Resolved]
  - Claustrophobia [Recovered/Resolved]
  - Rash [Recovered/Resolved]
